FAERS Safety Report 7964007-X (Version None)
Quarter: 2011Q4

REPORT INFORMATION
  Report Type: 
  Country: None (occurrence: None)
  Receive Date: 20111208
  Receipt Date: 20111201
  Transmission Date: 20120403
  Serious: No
  Sender: FDA-Public Use
  Company Number: US-BAYER-2011-116908

PATIENT
  Age: 32 Year
  Sex: Female
  Weight: 124 kg

DRUGS (3)
  1. BENADRYL [Concomitant]
  2. METHIMAZOLE [Concomitant]
  3. ALEVE (CAPLET) [Suspect]
     Indication: DYSMENORRHOEA
     Dosage: UNK, QD
     Route: 048
     Dates: start: 20111129, end: 20111130

REACTIONS (1)
  - DRUG INEFFECTIVE [None]
